FAERS Safety Report 5297765-6 (Version None)
Quarter: 2007Q1

REPORT INFORMATION
  Report Type: 
  Country: None (occurrence: None)
  Receive Date: 20070201
  Receipt Date: 20061024
  Transmission Date: 20070707
  Serious: No
  Sender: FDA-Public Use
  Company Number: 2006PV023843

PATIENT
  Age: 74 Year
  Sex: Male
  Weight: 140.6151 kg

DRUGS (8)
  1. BYETTA [Suspect]
     Indication: DIABETES MELLITUS NON-INSULIN-DEPENDENT
     Dosage: 5 MCG BID SC
     Route: 058
     Dates: start: 20061022
  2. METFORMIN HCL [Concomitant]
  3. TOPROL-XL [Concomitant]
  4. AVANDIA [Concomitant]
  5. TERAZOSIN HCL [Concomitant]
  6. LISINOPRIL [Concomitant]
  7. GLIPIZIDE [Concomitant]
  8. LYRICA [Concomitant]

REACTIONS (1)
  - DIPLOPIA [None]
